FAERS Safety Report 5974130-7 (Version None)
Quarter: 2008Q4

REPORT INFORMATION
  Report Type: 
  Country: None (occurrence: None)
  Receive Date: 20081201
  Receipt Date: 20081125
  Transmission Date: 20090506
  Serious: Yes (Hospitalization)
  Sender: FDA-Public Use
  Company Number: DZ-PFIZER INC-2008099393

PATIENT
  Age: 66 Year
  Sex: Female

DRUGS (1)
  1. PREGABALIN [Suspect]
     Indication: NEURALGIA
     Route: 048
     Dates: start: 20080914, end: 20080928

REACTIONS (2)
  - DERMATITIS [None]
  - DRUG ERUPTION [None]
